FAERS Safety Report 6898960-2 (Version None)
Quarter: 2010Q3

REPORT INFORMATION
  Report Type: 
  Country: None (occurrence: None)
  Receive Date: 20100802
  Receipt Date: 20071205
  Transmission Date: 20110219
  Serious: Yes (Other)
  Sender: FDA-Public Use
  Company Number: US-PFIZER INC-2007102512

PATIENT
  Sex: Female
  Weight: 56.7 kg

DRUGS (9)
  1. LYRICA [Suspect]
     Indication: FIBROMYALGIA
     Route: 048
     Dates: start: 20071123, end: 20071205
  2. AMBIEN [Concomitant]
  3. COMBIVENT [Concomitant]
  4. ANALGESICS [Concomitant]
  5. CYMBALTA [Concomitant]
  6. WELLBUTRIN [Concomitant]
  7. OXYCONTIN [Concomitant]
  8. MOBIC [Concomitant]
  9. CALCIUM [Concomitant]

REACTIONS (6)
  - CONFUSIONAL STATE [None]
  - COORDINATION ABNORMAL [None]
  - DIZZINESS [None]
  - EYE MOVEMENT DISORDER [None]
  - GAIT DISTURBANCE [None]
  - VISION BLURRED [None]
